FAERS Safety Report 6730094-X (Version None)
Quarter: 2010Q2

REPORT INFORMATION
  Report Type: 
  Country: None (occurrence: None)
  Receive Date: 20100513
  Receipt Date: 20100430
  Transmission Date: 20101027
  Serious: Yes (Other)
  Sender: FDA-Public Use
  Company Number: 2010S1002765

PATIENT
  Age: 68 Year
  Sex: Female

DRUGS (9)
  1. PHOSPHOSODA FLAVOR NOT SPECIFIED [Suspect]
     Indication: COLONOSCOPY
     Dosage: 90 ML; TOTAL; PO
     Route: 048
     Dates: start: 20050810, end: 20050811
  2. ACTONEL [Concomitant]
  3. MICARDIS [Concomitant]
  4. WELCHOL [Concomitant]
  5. FLUOXETINE [Concomitant]
  6. ALLEGRA [Concomitant]
  7. PREVACID [Concomitant]
  8. AMITRIPTYLINE [Concomitant]
  9. XALATAN [Concomitant]

REACTIONS (2)
  - BLOOD CREATININE INCREASED [None]
  - RENAL DISORDER [None]
